FAERS Safety Report 9390185 (Version 1)
Quarter: 2013Q3

REPORT INFORMATION
  Report Type: Spontaneous
  Country: US (occurrence: US)
  Receive Date: 20130708
  Receipt Date: 20130708
  Transmission Date: 20140515
  Serious: No
  Sender: FDA-Public Use
  Company Number: US-AMGEN-USASP2013045523

PATIENT
  Age: 30 Year
  Sex: Female

DRUGS (2)
  1. ENBREL [Suspect]
     Indication: PSORIATIC ARTHROPATHY
     Dosage: UNK UNK, QWK
     Route: 065
     Dates: start: 20130513
  2. METHOTREXATE [Concomitant]
     Dosage: 0.8 ML, QWK
     Dates: start: 2012

REACTIONS (5)
  - Abdominal pain upper [Not Recovered/Not Resolved]
  - Pruritus [Not Recovered/Not Resolved]
  - Local swelling [Not Recovered/Not Resolved]
  - Feeling hot [Not Recovered/Not Resolved]
  - Contusion [Not Recovered/Not Resolved]
